FAERS Safety Report 20323607 (Version 1)
Quarter: 2022Q1

REPORT INFORMATION
  Report Type: Spontaneous
  Country: US (occurrence: US)
  Receive Date: 20220111
  Receipt Date: 20220111
  Transmission Date: 20220423
  Serious: No
  Sender: FDA-Public Use
  Company Number: US-MACLEODS PHARMACEUTICALS US LTD-MAC2021034037

PATIENT

DRUGS (2)
  1. DONEPEZIL [Suspect]
     Active Substance: DONEPEZIL
     Indication: Product used for unknown indication
     Dosage: UNK
     Route: 065
  2. DONEPEZIL [Suspect]
     Active Substance: DONEPEZIL
     Dosage: UNK (INCREASED DOSE)
     Route: 065

REACTIONS (2)
  - Fatigue [Unknown]
  - Dizziness [Unknown]
